FAERS Safety Report 5336111-6 (Version None)
Quarter: 2007Q2

REPORT INFORMATION
  Report Type: 
  Country: None (occurrence: None)
  Receive Date: 20070302
  Receipt Date: 20061101
  Transmission Date: 20071010
  Serious: No
  Sender: FDA-Public Use
  Company Number: PHEH2006US13630

PATIENT
  Age: 52 Year
  Sex: Male

DRUGS (2)
  1. ENABLEX [Suspect]
     Indication: HYPERTONIC BLADDER
     Dosage: 15 MG, QD
     Dates: start: 20061031
  2. DIOVAN [Concomitant]

REACTIONS (4)
  - DRY EYE [None]
  - DRY MOUTH [None]
  - ENERGY INCREASED [None]
  - INSOMNIA [None]
